FAERS Safety Report 19264023 (Version 1)
Quarter: 2021Q2

REPORT INFORMATION
  Report Type: Spontaneous
  Country: US (occurrence: US)
  Receive Date: 20210515
  Receipt Date: 20210515
  Transmission Date: 20210717
  Serious: Yes (Other)
  Sender: FDA-Public Use
  Company Number: None

PATIENT
  Age: 65 Year
  Sex: Female
  Weight: 71.55 kg

DRUGS (12)
  1. ZINC. [Concomitant]
     Active Substance: ZINC
  2. LOW DOSE ASA [Concomitant]
  3. ESOMEPRAZOLE. [Concomitant]
     Active Substance: ESOMEPRAZOLE MAGNESIUM
  4. TIZANIDINE. [Concomitant]
     Active Substance: TIZANIDINE
  5. MAGNESIUM [Concomitant]
     Active Substance: MAGNESIUM
  6. VITAMIN C [Concomitant]
     Active Substance: ASCORBIC ACID
  7. ALENDRONATE SODIUM. [Suspect]
     Active Substance: ALENDRONATE SODIUM
     Indication: OSTEOPOROSIS
     Dosage: ?          QUANTITY:1 TABLET(S);OTHER FREQUENCY:WEEKLY;?
     Route: 048
     Dates: start: 20210406, end: 20210504
  8. NP THYROID [Concomitant]
     Active Substance: LEVOTHYROXINE\LIOTHYRONINE
  9. LOW DOSE NALTREXONE [Concomitant]
     Active Substance: NALTREXONE
  10. TRAMADOL. [Concomitant]
     Active Substance: TRAMADOL
  11. GLUCOSAMINE [Concomitant]
     Active Substance: GLUCOSAMINE
  12. FISH OIL [Concomitant]
     Active Substance: FISH OIL

REACTIONS (4)
  - Back pain [None]
  - Arthralgia [None]
  - Neck pain [None]
  - Pain in jaw [None]

NARRATIVE: CASE EVENT DATE: 20210504
